FAERS Safety Report 21646681 (Version 2)
Quarter: 2022Q4

REPORT INFORMATION
  Report Type: Spontaneous
  Country: IT (occurrence: IT)
  Receive Date: 20221127
  Receipt Date: 20221214
  Transmission Date: 20230112
  Serious: Yes (Death, Hospitalization)
  Sender: FDA-Public Use
  Company Number: IT-TEVA-2022-IT-2829049

PATIENT
  Age: 40 Year
  Sex: Female

DRUGS (16)
  1. OXALIPLATIN [Suspect]
     Active Substance: OXALIPLATIN
     Indication: Desmoid tumour
     Dosage: (PART OF RDHAOX REGIMEN), 65 MG/M2
     Route: 042
  2. OXALIPLATIN [Suspect]
     Active Substance: OXALIPLATIN
     Indication: Follicular lymphoma
  3. PREDNISONE [Suspect]
     Active Substance: PREDNISONE
     Indication: Desmoid tumour
     Dosage: PART OF R-CHOP REGIMEN, 100 MG
     Route: 065
  4. PREDNISONE [Suspect]
     Active Substance: PREDNISONE
     Indication: Follicular lymphoma
  5. VINCRISTINE [Suspect]
     Active Substance: VINCRISTINE
     Indication: Desmoid tumour
     Dosage: (PART OF R-CHOP REGIMEN), 1.4 MG/M2
     Route: 042
  6. VINCRISTINE [Suspect]
     Active Substance: VINCRISTINE
     Indication: Follicular lymphoma
  7. RITUXIMAB [Suspect]
     Active Substance: RITUXIMAB
     Indication: Desmoid tumour
     Dosage: (PART OF R-CHOP REGIMEN), 375 MG/M2
     Route: 042
  8. RITUXIMAB [Suspect]
     Active Substance: RITUXIMAB
     Indication: Follicular lymphoma
     Dosage: (PART OF RDHAOX REGIMEN), 375 MG/M2
     Route: 042
  9. CYCLOPHOSPHAMIDE [Suspect]
     Active Substance: CYCLOPHOSPHAMIDE
     Indication: Desmoid tumour
     Dosage: (PART OF R-CHOP REGIMEN), 750 MG/M2
     Route: 042
  10. CYCLOPHOSPHAMIDE [Suspect]
     Active Substance: CYCLOPHOSPHAMIDE
     Indication: Follicular lymphoma
  11. DEXAMETHASONE [Suspect]
     Active Substance: DEXAMETHASONE
     Indication: Desmoid tumour
     Dosage: PART OF RDHAOX REGIMEN, 40 MG
     Route: 042
  12. DEXAMETHASONE [Suspect]
     Active Substance: DEXAMETHASONE
     Indication: Follicular lymphoma
     Dosage: PART OF RDHAOX REGIMEN, 40 MG
     Route: 048
  13. CYTARABINE [Suspect]
     Active Substance: CYTARABINE
     Indication: Desmoid tumour
     Dosage: (PART OF RDHAOX REGIMEN), 1000 MG/M2
     Route: 042
  14. CYTARABINE [Suspect]
     Active Substance: CYTARABINE
     Indication: Follicular lymphoma
  15. DOXORUBICIN [Concomitant]
     Active Substance: DOXORUBICIN
     Indication: Desmoid tumour
     Dosage: (PART OF R-CHOP REGIMEN), 50 MG/M2
     Route: 042
  16. DOXORUBICIN [Concomitant]
     Active Substance: DOXORUBICIN
     Indication: Follicular lymphoma
     Dosage: (MONOTHERAPY), 20 MG/M2
     Route: 065

REACTIONS (1)
  - Drug ineffective [Fatal]
